FAERS Safety Report 5831163-9 (Version None)
Quarter: 2008Q3

REPORT INFORMATION
  Report Type: 
  Country: None (occurrence: None)
  Receive Date: 20080801
  Receipt Date: 20080506
  Transmission Date: 20090109
  Serious: No
  Sender: FDA-Public Use
  Company Number: US-BRISTOL-MYERS SQUIBB COMPANY-14180350

PATIENT

DRUGS (1)
  1. COUMADIN [Suspect]

REACTIONS (1)
  - CHEST PAIN [None]
